FAERS Safety Report 9387498 (Version 1)
Quarter: 2013Q3

REPORT INFORMATION
  Report Type: Spontaneous
  Country: US (occurrence: None)
  Receive Date: 20130702
  Receipt Date: 20130702
  Transmission Date: 20140515
  Serious: Yes (Life-Threatening, Hospitalization, Other)
  Sender: FDA-Public Use
  Company Number: 2013P1010497

PATIENT
  Age: 49 Year
  Sex: Female
  Weight: 134.72 kg

DRUGS (14)
  1. PLAQUENIL [Suspect]
     Indication: SYSTEMIC LUPUS ERYTHEMATOSUS
     Route: 048
     Dates: start: 2010
  2. GLIMEPIRIDE [Suspect]
     Route: 048
     Dates: start: 2009
  3. PREDNISONE [Suspect]
     Indication: SYSTEMIC LUPUS ERYTHEMATOSUS
     Route: 048
     Dates: start: 2010
  4. METFORMIN [Suspect]
     Route: 048
     Dates: start: 2009
  5. PLACEBO [Suspect]
     Indication: SYSTEMIC LUPUS ERYTHEMATOSUS
     Route: 058
     Dates: start: 20120403, end: 20120612
  6. CELLCEPT [Suspect]
     Indication: NEPHRITIS
     Route: 048
     Dates: start: 2010
  7. LORCET [Concomitant]
  8. NEURONTIN [Concomitant]
  9. COUMADIN [Concomitant]
  10. LOSARTAN [Concomitant]
  11. AMBIEN [Concomitant]
  12. POTASSIUM [Concomitant]
  13. CARDIZEM [Concomitant]
  14. HYDROCHLOROTHIAZIDE [Concomitant]

REACTIONS (12)
  - Malaise [None]
  - Diarrhoea [None]
  - Asthenia [None]
  - Sepsis [None]
  - Respiratory failure [None]
  - Nausea [None]
  - Pyrexia [None]
  - Fall [None]
  - Choking [None]
  - Hypotension [None]
  - Procalcitonin increased [None]
  - Renal failure [None]
